FAERS Safety Report 8315180-5 (Version None)
Quarter: 2012Q2

REPORT INFORMATION
  Report Type: 
  Country: None (occurrence: None)
  Receive Date: 20120426
  Receipt Date: 20120403
  Transmission Date: 20120825
  Serious: Yes (Other)
  Sender: FDA-Public Use
  Company Number: AU-GLAXOSMITHKLINE-B0793242A

PATIENT
  Sex: Male

DRUGS (1)
  1. VENTOLIN [Suspect]
     Indication: ASTHMA
     Dosage: 1PUFF THREE TIMES PER DAY
     Route: 065

REACTIONS (4)
  - PRODUCT QUALITY ISSUE [None]
  - ASTHMA [None]
  - DRUG INEFFECTIVE [None]
  - DEVICE INEFFECTIVE [None]
